FAERS Safety Report 6285493-X (Version None)
Quarter: 2009Q3

REPORT INFORMATION
  Report Type: 
  Country: None (occurrence: None)
  Receive Date: 20090716
  Receipt Date: 20090421
  Transmission Date: 20100115
  Serious: Yes (Other)
  Sender: FDA-Public Use
  Company Number: 2009BI010666

PATIENT
  Sex: Male
  Weight: 2.3179 kg

DRUGS (3)
  1. AVONEX [Suspect]
     Indication: MULTIPLE SCLEROSIS
     Dosage: 30 UG;QW;TRPL
     Route: 064
     Dates: start: 20081014, end: 20090309
  2. CON MEDS [Concomitant]
  3. PREV MEDS [Concomitant]

REACTIONS (4)
  - DYSPNOEA [None]
  - INVESTIGATION ABNORMAL [None]
  - JAUNDICE [None]
  - WEIGHT GAIN POOR [None]
